FAERS Safety Report 15023662 (Version 1)
Quarter: 2018Q2

REPORT INFORMATION
  Report Type: Spontaneous
  Country: DE (occurrence: DE)
  Receive Date: 20180618
  Receipt Date: 20180618
  Transmission Date: 20180711
  Serious: Yes (Hospitalization)
  Sender: FDA-Public Use
  Company Number: DE-TEVA-2018-DE-907594

PATIENT
  Age: 86 Year
  Sex: Female

DRUGS (16)
  1. HYDROCHLOROTHIAZID [Suspect]
     Active Substance: HYDROCHLOROTHIAZIDE
     Dosage: 12.5 MG, 1-0-0-0, TABLETTEN
     Route: 048
  2. NIFEDIPINE. [Concomitant]
     Active Substance: NIFEDIPINE
     Dosage: BEDARF, TROPFEN
     Route: 048
  3. COLECALCIFEROL [Concomitant]
     Active Substance: CHOLECALCIFEROL
     Dosage: 1250|4 MG, 1-0-0-0, TABLETTEN
     Route: 048
  4. DOXAZOSIN [Concomitant]
     Active Substance: DOXAZOSIN\DOXAZOSIN MESYLATE
     Dosage: 4 MG, 1-0-1-0, TABLETTEN
     Route: 048
  5. TORASEMID [Suspect]
     Active Substance: TORSEMIDE
     Dosage: 10 MG, 2-2-0-0, TABLETTEN
     Route: 048
  6. TRIMIPRAMINE [Concomitant]
     Active Substance: TRIMIPRAMINE
     Dosage: 25 MG, 0-0-1-0, TABLETTEN
     Route: 048
  7. INDAPAMIDE. [Suspect]
     Active Substance: INDAPAMIDE
     Dosage: 1.5 MG, 1-0-0-0, TABLETTEN
     Route: 048
  8. MAGNESIUM [Concomitant]
     Active Substance: MAGNESIUM
     Dosage: 121.5 MG, 1-0-0-0, L?SUNG
     Route: 048
  9. SULPIRIDE [Concomitant]
     Active Substance: SULPIRIDE
     Dosage: 50 MG, 1-0-0-0, TABLETTEN
     Route: 048
  10. PRAZEPAM [Concomitant]
     Active Substance: PRAZEPAM
     Dosage: 10 MG, 1-0-0-0, TABLETTEN
     Route: 048
  11. CANDESARTAN. [Suspect]
     Active Substance: CANDESARTAN
     Dosage: 32|12.5 MG, 1-0-0-0, TABLETTEN
     Route: 048
  12. RIVAROXABAN [Suspect]
     Active Substance: RIVAROXABAN
     Dosage: 20 MG, 1-0-0-0, TABLETTEN
     Route: 048
  13. KALIUM-MAGNESIUM [Concomitant]
     Dosage: 117.3|36.5 MG, 1-0-1-0, TABLETTEN
     Route: 048
  14. LEVOTHYROXINE. [Concomitant]
     Active Substance: LEVOTHYROXINE
     Dosage: 75 ?G, 1-0-0-0, TABLETTEN
     Route: 048
  15. TOCOPHEROL [Concomitant]
     Active Substance: TOCOPHEROL
     Dosage: 200 IE, 1-0-0-0, KAPSELN
     Route: 048
  16. METOPROLOL. [Concomitant]
     Active Substance: METOPROLOL
     Dosage: 95 MG, 1-0-1-0, TABLETTEN
     Route: 048

REACTIONS (4)
  - Acute kidney injury [Unknown]
  - Drug prescribing error [Unknown]
  - Oedema peripheral [Unknown]
  - Renal impairment [Unknown]
